FAERS Safety Report 14074494 (Version 1)
Quarter: 2017Q4

REPORT INFORMATION
  Report Type: Spontaneous
  Country: US (occurrence: US)
  Receive Date: 20171011
  Receipt Date: 20171011
  Transmission Date: 20180321
  Serious: Yes (Hospitalization)
  Sender: FDA-Public Use
  Company Number: US-GLENMARK PHARMACEUTICALS-2017GMK029038

PATIENT
  Age: 61 Year
  Sex: Male

DRUGS (5)
  1. VORICONAZOLE. [Suspect]
     Active Substance: VORICONAZOLE
     Indication: BRONCHOPULMONARY ASPERGILLOSIS
     Dosage: 450 MG, BID (FOR 2 DOSES)
     Route: 042
  2. FLUCONAZOLE. [Suspect]
     Active Substance: FLUCONAZOLE
     Indication: PNEUMONIA
     Dosage: UNK
     Route: 042
  3. VORICONAZOLE. [Suspect]
     Active Substance: VORICONAZOLE
     Dosage: 300 MG, BID
     Route: 048
  4. TAZOCIN [Concomitant]
     Active Substance: PIPERACILLIN SODIUM\TAZOBACTAM SODIUM
     Indication: PNEUMONIA
     Dosage: UNK
     Route: 042
  5. VORICONAZOLE. [Suspect]
     Active Substance: VORICONAZOLE
     Dosage: 300 MG, QD
     Route: 042

REACTIONS (3)
  - Periostitis [Recovering/Resolving]
  - Pneumonia [Recovering/Resolving]
  - Fluorosis [Recovering/Resolving]
